FAERS Safety Report 5630652-X (Version None)
Quarter: 2008Q1

REPORT INFORMATION
  Report Type: 
  Country: None (occurrence: None)
  Receive Date: 20080214
  Receipt Date: 20080208
  Transmission Date: 20080703
  Serious: Yes (Death, Hospitalization)
  Sender: FDA-Public Use
  Company Number: 2008003509

PATIENT
  Age: 31 Year
  Sex: Female
  Weight: 73.8 kg

DRUGS (3)
  1. SUDAFED S.A. [Suspect]
     Indication: UPPER RESPIRATORY TRACT INFECTION
     Dosage: ESTIMATE MAXIMUM DOSAGE 90.0 MG/D, ORAL
     Route: 048
  2. NYQUIL (DEXTROMETHORPHAN HYDROBROMIDE, DOXYLAMINE SUCCINATE, EPHEDRINE [Suspect]
     Indication: UPPER RESPIRATORY TRACT INFECTION
     Dosage: ORAL
     Route: 048
  3. LOESTRIN 1.5/30 [Concomitant]

REACTIONS (23)
  - CARDIAC FAILURE [None]
  - CARDIOMYOPATHY [None]
  - DIZZINESS [None]
  - DYSPNOEA [None]
  - FATIGUE [None]
  - HYPERGLYCAEMIA [None]
  - HYPERHIDROSIS [None]
  - HYPERTENSION [None]
  - METABOLIC ACIDOSIS [None]
  - MYOCARDIAL INFARCTION [None]
  - NECROSIS [None]
  - PANIC ATTACK [None]
  - PHAEOCHROMOCYTOMA [None]
  - PNEUMONIA [None]
  - RESPIRATORY FAILURE [None]
  - RESPIRATORY RATE INCREASED [None]
  - RHYTHM IDIOVENTRICULAR [None]
  - SEPSIS [None]
  - SHOCK [None]
  - SOMNOLENCE [None]
  - SYNCOPE [None]
  - VENTRICULAR TACHYCARDIA [None]
  - VOMITING [None]
